FAERS Safety Report 5348040-2 (Version None)
Quarter: 2007Q2

REPORT INFORMATION
  Report Type: 
  Country: None (occurrence: None)
  Receive Date: 20070508
  Receipt Date: 20060311
  Transmission Date: 20071010
  Serious: Yes (Hospitalization)
  Sender: FDA-Public Use
  Company Number: 231401K06USA

PATIENT
  Age: 50 Year
  Sex: Female

DRUGS (6)
  1. REBIF [Suspect]
     Indication: MULTIPLE SCLEROSIS
     Dosage: 8.8 MCG, 3 IN 1 WEEKS,
     Dates: start: 20060101
  2. NEURONTIN [Concomitant]
  3. HYDROCODONE (HYDROCODONE) [Concomitant]
  4. PROTONIX [Concomitant]
  5. ALLEGRA [Concomitant]
  6. HYDROXYZINE (HYDROXIDE HYDROCHLORIDE) [Concomitant]

REACTIONS (1)
  - CHEST PAIN [None]
